FAERS Safety Report 8770354 (Version 1)
Quarter: 2012Q4

REPORT INFORMATION
  Report Type: 
  Country: NL (occurrence: NL)
  Receive Date: 20120905
  Receipt Date: 20120905
  Transmission Date: 20130627
  Serious: Yes (Other)
  Sender: FDA-Public Use
  Company Number: PHHY2012NL076639

PATIENT
  Age: 66 Year
  Sex: Female

DRUGS (2)
  1. ACLASTA [Suspect]
     Dosage: 5 mg, yearly
     Route: 042
     Dates: start: 20100914
  2. ACLASTA [Suspect]
     Dosage: 5 mg, yearly
     Route: 042
     Dates: start: 20110914, end: 20110914

REACTIONS (1)
  - Cardiac arrest [Unknown]
